FAERS Safety Report 25170866 (Version 1)
Quarter: 2025Q2

REPORT INFORMATION
  Report Type: Spontaneous
  Country: TW (occurrence: TW)
  Receive Date: 20250408
  Receipt Date: 20250408
  Transmission Date: 20250717
  Serious: Yes (Hospitalization, Other)
  Sender: CHEPLAPHARM
  Company Number: TW-CHEPLA-2025004382

PATIENT
  Age: 38 Year
  Sex: Male

DRUGS (54)
  1. CLONAZEPAM [Suspect]
     Active Substance: CLONAZEPAM
     Dosage: DISCONTINUED?DAILY DOSE: 3 MILLIGRAM
  2. CLONAZEPAM [Suspect]
     Active Substance: CLONAZEPAM
     Dosage: RESUMED?DAILY DOSE: 3 MILLIGRAM
  3. OLANZAPINE [Suspect]
     Active Substance: OLANZAPINE
     Dosage: DISCONTINUED?DAILY DOSE: 10 MILLIGRAM
  4. OLANZAPINE [Suspect]
     Active Substance: OLANZAPINE
     Dosage: RESUMED?DAILY DOSE: 10 MILLIGRAM
  5. ZOPICLONE [Suspect]
     Active Substance: ZOPICLONE
     Dosage: DISCONTINUED?DAILY DOSE: 7.5 MILLIGRAM
  6. ZOPICLONE [Suspect]
     Active Substance: ZOPICLONE
     Dosage: RESUMED?DAILY DOSE: 7.5 MILLIGRAM
  7. VALPROIC ACID [Suspect]
     Active Substance: VALPROIC ACID
     Indication: Toxicity to various agents
     Dosage: TOTAL OF 50 TABLETS OF VALPROIC ACID (500 MG PER TABLET)/ NEARLY 12,500 MG/D OF VALPROIC ACID
  8. VALPROIC ACID [Suspect]
     Active Substance: VALPROIC ACID
     Indication: Intentional product misuse
     Dosage: TOTAL OF 50 TABLETS OF VALPROIC ACID (500 MG PER TABLET)/ NEARLY 12,500 MG/D OF VALPROIC ACID
  9. VALPROIC ACID [Suspect]
     Active Substance: VALPROIC ACID
     Indication: Bipolar disorder
     Dosage: TOTAL OF 50 TABLETS OF VALPROIC ACID (500 MG PER TABLET)/ NEARLY 12,500 MG/D OF VALPROIC ACID
  10. VALPROIC ACID [Suspect]
     Active Substance: VALPROIC ACID
     Indication: Somnolence
     Dosage: TOTAL OF 50 TABLETS OF VALPROIC ACID (500 MG PER TABLET)/ NEARLY 12,500 MG/D OF VALPROIC ACID
  11. VALPROIC ACID [Suspect]
     Active Substance: VALPROIC ACID
     Indication: Intentional overdose
     Dosage: TOTAL OF 50 TABLETS OF VALPROIC ACID (500 MG PER TABLET)/ NEARLY 12,500 MG/D OF VALPROIC ACID
  12. VALPROIC ACID [Suspect]
     Active Substance: VALPROIC ACID
     Indication: Delirium
     Dosage: TOTAL OF 50 TABLETS OF VALPROIC ACID (500 MG PER TABLET)/ NEARLY 12,500 MG/D OF VALPROIC ACID
  13. VALPROIC ACID [Suspect]
     Active Substance: VALPROIC ACID
     Indication: Toxicity to various agents
     Dosage: INCREASED TO 70 TABLETS OF VALPROIC ACID/NEARLY 17,500 MG/D OF VALPROIC ACID
  14. VALPROIC ACID [Suspect]
     Active Substance: VALPROIC ACID
     Indication: Intentional product misuse
     Dosage: INCREASED TO 70 TABLETS OF VALPROIC ACID/NEARLY 17,500 MG/D OF VALPROIC ACID
  15. VALPROIC ACID [Suspect]
     Active Substance: VALPROIC ACID
     Indication: Bipolar disorder
     Dosage: INCREASED TO 70 TABLETS OF VALPROIC ACID/NEARLY 17,500 MG/D OF VALPROIC ACID
  16. VALPROIC ACID [Suspect]
     Active Substance: VALPROIC ACID
     Indication: Somnolence
     Dosage: INCREASED TO 70 TABLETS OF VALPROIC ACID/NEARLY 17,500 MG/D OF VALPROIC ACID
  17. VALPROIC ACID [Suspect]
     Active Substance: VALPROIC ACID
     Indication: Intentional overdose
     Dosage: INCREASED TO 70 TABLETS OF VALPROIC ACID/NEARLY 17,500 MG/D OF VALPROIC ACID
  18. VALPROIC ACID [Suspect]
     Active Substance: VALPROIC ACID
     Indication: Delirium
     Dosage: INCREASED TO 70 TABLETS OF VALPROIC ACID/NEARLY 17,500 MG/D OF VALPROIC ACID
  19. VALPROIC ACID [Suspect]
     Active Substance: VALPROIC ACID
     Indication: Toxicity to various agents
     Dosage: HE INCREASED THE DOSAGE TO 100 TABLETS PER DAY, NEARLY 25,000 MG/D OF VALPROIC ACID /STOPPED
  20. VALPROIC ACID [Suspect]
     Active Substance: VALPROIC ACID
     Indication: Intentional product misuse
     Dosage: HE INCREASED THE DOSAGE TO 100 TABLETS PER DAY, NEARLY 25,000 MG/D OF VALPROIC ACID /STOPPED
  21. VALPROIC ACID [Suspect]
     Active Substance: VALPROIC ACID
     Indication: Bipolar disorder
     Dosage: HE INCREASED THE DOSAGE TO 100 TABLETS PER DAY, NEARLY 25,000 MG/D OF VALPROIC ACID /STOPPED
  22. VALPROIC ACID [Suspect]
     Active Substance: VALPROIC ACID
     Indication: Somnolence
     Dosage: HE INCREASED THE DOSAGE TO 100 TABLETS PER DAY, NEARLY 25,000 MG/D OF VALPROIC ACID /STOPPED
  23. VALPROIC ACID [Suspect]
     Active Substance: VALPROIC ACID
     Indication: Intentional overdose
     Dosage: HE INCREASED THE DOSAGE TO 100 TABLETS PER DAY, NEARLY 25,000 MG/D OF VALPROIC ACID /STOPPED
  24. VALPROIC ACID [Suspect]
     Active Substance: VALPROIC ACID
     Indication: Delirium
     Dosage: HE INCREASED THE DOSAGE TO 100 TABLETS PER DAY, NEARLY 25,000 MG/D OF VALPROIC ACID /STOPPED
  25. VALPROIC ACID [Suspect]
     Active Substance: VALPROIC ACID
     Indication: Toxicity to various agents
     Dosage: RESUMED?DAILY DOSE: 1000 MILLIGRAM
  26. VALPROIC ACID [Suspect]
     Active Substance: VALPROIC ACID
     Indication: Intentional product misuse
     Dosage: RESUMED?DAILY DOSE: 1000 MILLIGRAM
  27. VALPROIC ACID [Suspect]
     Active Substance: VALPROIC ACID
     Indication: Bipolar disorder
     Dosage: RESUMED?DAILY DOSE: 1000 MILLIGRAM
  28. VALPROIC ACID [Suspect]
     Active Substance: VALPROIC ACID
     Indication: Somnolence
     Dosage: RESUMED?DAILY DOSE: 1000 MILLIGRAM
  29. VALPROIC ACID [Suspect]
     Active Substance: VALPROIC ACID
     Indication: Intentional overdose
     Dosage: RESUMED?DAILY DOSE: 1000 MILLIGRAM
  30. VALPROIC ACID [Suspect]
     Active Substance: VALPROIC ACID
     Indication: Delirium
     Dosage: RESUMED?DAILY DOSE: 1000 MILLIGRAM
  31. LITHIUM CARBONATE [Suspect]
     Active Substance: LITHIUM CARBONATE
     Indication: Bipolar disorder
     Dosage: LITHIUM CARBONATE (300 MG PER TABLET)/ 7,500 MG/D OF LITHIUM?DAILY DOSE: 7500 MILLIGRAM
  32. LITHIUM CARBONATE [Suspect]
     Active Substance: LITHIUM CARBONATE
     Indication: Intentional product misuse
     Dosage: LITHIUM CARBONATE (300 MG PER TABLET)/ 7,500 MG/D OF LITHIUM?DAILY DOSE: 7500 MILLIGRAM
  33. LITHIUM CARBONATE [Suspect]
     Active Substance: LITHIUM CARBONATE
     Indication: Somnolence
     Dosage: LITHIUM CARBONATE (300 MG PER TABLET)/ 7,500 MG/D OF LITHIUM?DAILY DOSE: 7500 MILLIGRAM
  34. LITHIUM CARBONATE [Suspect]
     Active Substance: LITHIUM CARBONATE
     Indication: Withdrawal syndrome
     Dosage: LITHIUM CARBONATE (300 MG PER TABLET)/ 7,500 MG/D OF LITHIUM?DAILY DOSE: 7500 MILLIGRAM
  35. LITHIUM CARBONATE [Suspect]
     Active Substance: LITHIUM CARBONATE
     Indication: Mania
     Dosage: LITHIUM CARBONATE (300 MG PER TABLET)/ 7,500 MG/D OF LITHIUM?DAILY DOSE: 7500 MILLIGRAM
  36. LITHIUM CARBONATE [Suspect]
     Active Substance: LITHIUM CARBONATE
     Indication: Delirium
     Dosage: LITHIUM CARBONATE (300 MG PER TABLET)/ 7,500 MG/D OF LITHIUM?DAILY DOSE: 7500 MILLIGRAM
  37. LITHIUM CARBONATE [Suspect]
     Active Substance: LITHIUM CARBONATE
     Indication: Intentional overdose
     Dosage: LITHIUM CARBONATE (300 MG PER TABLET)/ 7,500 MG/D OF LITHIUM?DAILY DOSE: 7500 MILLIGRAM
  38. LITHIUM CARBONATE [Suspect]
     Active Substance: LITHIUM CARBONATE
     Indication: Toxicity to various agents
     Dosage: LITHIUM CARBONATE (300 MG PER TABLET)/ 7,500 MG/D OF LITHIUM?DAILY DOSE: 7500 MILLIGRAM
  39. LITHIUM CARBONATE [Suspect]
     Active Substance: LITHIUM CARBONATE
     Indication: Bipolar disorder
     Dosage: INCREASED TO 70 TABLETS OF LITHIUM CARBONATE/10,500 MG/D OF LITHIUM CARBONATE
  40. LITHIUM CARBONATE [Suspect]
     Active Substance: LITHIUM CARBONATE
     Indication: Intentional product misuse
     Dosage: INCREASED TO 70 TABLETS OF LITHIUM CARBONATE/10,500 MG/D OF LITHIUM CARBONATE
  41. LITHIUM CARBONATE [Suspect]
     Active Substance: LITHIUM CARBONATE
     Indication: Somnolence
     Dosage: INCREASED TO 70 TABLETS OF LITHIUM CARBONATE/10,500 MG/D OF LITHIUM CARBONATE
  42. LITHIUM CARBONATE [Suspect]
     Active Substance: LITHIUM CARBONATE
     Indication: Withdrawal syndrome
     Dosage: INCREASED TO 70 TABLETS OF LITHIUM CARBONATE/10,500 MG/D OF LITHIUM CARBONATE
  43. LITHIUM CARBONATE [Suspect]
     Active Substance: LITHIUM CARBONATE
     Indication: Mania
     Dosage: INCREASED TO 70 TABLETS OF LITHIUM CARBONATE/10,500 MG/D OF LITHIUM CARBONATE
  44. LITHIUM CARBONATE [Suspect]
     Active Substance: LITHIUM CARBONATE
     Indication: Delirium
     Dosage: INCREASED TO 70 TABLETS OF LITHIUM CARBONATE/10,500 MG/D OF LITHIUM CARBONATE
  45. LITHIUM CARBONATE [Suspect]
     Active Substance: LITHIUM CARBONATE
     Indication: Intentional overdose
     Dosage: INCREASED TO 70 TABLETS OF LITHIUM CARBONATE/10,500 MG/D OF LITHIUM CARBONATE
  46. LITHIUM CARBONATE [Suspect]
     Active Substance: LITHIUM CARBONATE
     Indication: Toxicity to various agents
     Dosage: INCREASED TO 70 TABLETS OF LITHIUM CARBONATE/10,500 MG/D OF LITHIUM CARBONATE
  47. LITHIUM CARBONATE [Suspect]
     Active Substance: LITHIUM CARBONATE
     Indication: Bipolar disorder
     Dosage: INCREASED TO 15,000 MG/D OF LITHIUM CARBONATE?DAILY DOSE: 15000 MILLIGRAM
  48. LITHIUM CARBONATE [Suspect]
     Active Substance: LITHIUM CARBONATE
     Indication: Intentional product misuse
     Dosage: INCREASED TO 15,000 MG/D OF LITHIUM CARBONATE?DAILY DOSE: 15000 MILLIGRAM
  49. LITHIUM CARBONATE [Suspect]
     Active Substance: LITHIUM CARBONATE
     Indication: Somnolence
     Dosage: INCREASED TO 15,000 MG/D OF LITHIUM CARBONATE?DAILY DOSE: 15000 MILLIGRAM
  50. LITHIUM CARBONATE [Suspect]
     Active Substance: LITHIUM CARBONATE
     Indication: Withdrawal syndrome
     Dosage: INCREASED TO 15,000 MG/D OF LITHIUM CARBONATE?DAILY DOSE: 15000 MILLIGRAM
  51. LITHIUM CARBONATE [Suspect]
     Active Substance: LITHIUM CARBONATE
     Indication: Mania
     Dosage: INCREASED TO 15,000 MG/D OF LITHIUM CARBONATE?DAILY DOSE: 15000 MILLIGRAM
  52. LITHIUM CARBONATE [Suspect]
     Active Substance: LITHIUM CARBONATE
     Indication: Delirium
     Dosage: INCREASED TO 15,000 MG/D OF LITHIUM CARBONATE?DAILY DOSE: 15000 MILLIGRAM
  53. LITHIUM CARBONATE [Suspect]
     Active Substance: LITHIUM CARBONATE
     Indication: Intentional overdose
     Dosage: INCREASED TO 15,000 MG/D OF LITHIUM CARBONATE?DAILY DOSE: 15000 MILLIGRAM
  54. LITHIUM CARBONATE [Suspect]
     Active Substance: LITHIUM CARBONATE
     Indication: Toxicity to various agents
     Dosage: INCREASED TO 15,000 MG/D OF LITHIUM CARBONATE?DAILY DOSE: 15000 MILLIGRAM

REACTIONS (4)
  - Renal failure [Unknown]
  - Hyperammonaemia [Unknown]
  - Depression [Recovering/Resolving]
  - Treatment noncompliance [Unknown]
